FAERS Safety Report 16861587 (Version 1)
Quarter: 2019Q3

REPORT INFORMATION
  Report Type: Spontaneous
  Country: FR (occurrence: FR)
  Receive Date: 20190927
  Receipt Date: 20190927
  Transmission Date: 20191005
  Serious: Yes (Hospitalization)
  Sender: FDA-Public Use
  Company Number: FR-HARMONY BIOSCIENCES-2019HMY00006

PATIENT
  Age: 49 Year
  Sex: Female

DRUGS (3)
  1. VENLAFAXINE [Suspect]
     Active Substance: VENLAFAXINE HYDROCHLORIDE
     Indication: NARCOLEPSY
     Dosage: 150 MG, 1X/DAY
     Route: 065
     Dates: start: 201505
  2. METHYLPHENIDATE. [Suspect]
     Active Substance: METHYLPHENIDATE
     Indication: NARCOLEPSY
     Dosage: 40 MG, 1X/DAY (CUMULATIVE DOSE: 43 G)
     Route: 065
     Dates: start: 201505, end: 2018
  3. PITOLISANT [Suspect]
     Active Substance: PITOLISANT
     Indication: NARCOLEPSY
     Dosage: 18 MG, 1X/DAY
     Route: 065
     Dates: start: 201709

REACTIONS (2)
  - Drug interaction [Unknown]
  - Splenic infarction [Unknown]

NARRATIVE: CASE EVENT DATE: 20180428
